FAERS Safety Report 8192070-2 (Version None)
Quarter: 2012Q1

REPORT INFORMATION
  Report Type: 
  Country: None (occurrence: None)
  Receive Date: 20120307
  Receipt Date: 20120305
  Transmission Date: 20120608
  Serious: Yes (Death, Life-Threatening, Other)
  Sender: FDA-Public Use
  Company Number: DE-B.I. PHARMACEUTICALS,INC./RIDGEFIELD-2012-DE-00651DE

PATIENT
  Sex: Male
  Weight: 71 kg

DRUGS (9)
  1. ACE-HEMMER [Concomitant]
  2. NEBIVOLOL HCL [Concomitant]
     Indication: CARDIAC FAILURE
     Dosage: 5 MG
     Route: 048
  3. BETABLOCKER [Concomitant]
  4. RAMIPRIL [Concomitant]
     Indication: CARDIAC FAILURE
     Dosage: 10 MG
     Route: 048
  5. HYDROCHLOROTHIAZIDE [Concomitant]
     Indication: CARDIAC FAILURE
     Dosage: 25 MG
     Route: 048
  6. PRADAXA [Suspect]
     Indication: ATRIAL FIBRILLATION
     Dosage: 220 MG
     Route: 048
  7. SPIROLACTON [Concomitant]
     Indication: CARDIAC FAILURE
     Dosage: 50 MG
     Route: 048
  8. DIURETIKA [Concomitant]
  9. ALDOSTERON [Concomitant]

REACTIONS (4)
  - SHOCK HAEMORRHAGIC [None]
  - ANAL HAEMORRHAGE [None]
  - GASTROINTESTINAL HAEMORRHAGE [None]
  - HAEMATOCHEZIA [None]
